FAERS Safety Report 11537323 (Version 3)
Quarter: 2015Q4

REPORT INFORMATION
  Report Type: Spontaneous
  Country: BE (occurrence: BE)
  Receive Date: 20150922
  Receipt Date: 20151106
  Transmission Date: 20160304
  Serious: Yes (Hospitalization)
  Sender: FDA-Public Use
  Company Number: BE-FERRINGPH-2015FE03094

PATIENT

DRUGS (2)
  1. MENOPUR [Suspect]
     Active Substance: FOLLICLE STIMULATING HORMONE BETA POLYPEPTIDE\LUTROPIN ALFA
     Indication: ARTIFICIAL INSEMINATION BY PARTNER
     Dosage: 37 IU, DAILY
     Route: 058
     Dates: start: 20150421, end: 20150425
  2. MENOPUR [Suspect]
     Active Substance: FOLLICLE STIMULATING HORMONE BETA POLYPEPTIDE\LUTROPIN ALFA
     Dosage: 75 IU, DAILY
     Route: 058
     Dates: start: 20150430, end: 20150430

REACTIONS (9)
  - Pelvic venous thrombosis [Recovered/Resolved]
  - Ascites [None]
  - Gastroduodenal ulcer [None]
  - Acute respiratory distress syndrome [Recovered/Resolved]
  - Cholelithiasis [None]
  - Cholecystitis acute [None]
  - Hepatomegaly [None]
  - Urinary tract infection bacterial [Recovered/Resolved]
  - Ovarian cyst [None]

NARRATIVE: CASE EVENT DATE: 20150505
